FAERS Safety Report 8132107-X (Version None)
Quarter: 2012Q1

REPORT INFORMATION
  Report Type: 
  Country: None (occurrence: None)
  Receive Date: 20120208
  Receipt Date: 20120130
  Transmission Date: 20120608
  Serious: Yes (Other)
  Sender: FDA-Public Use
  Company Number: 1000026274

PATIENT
  Age: 28 Year
  Sex: Female
  Weight: 51.26 kg

DRUGS (6)
  1. VIIBRYD [Suspect]
     Indication: DEPRESSION
     Dosage: 40 MG (40 MG, 1 IN 1 D), ORAL
     Route: 048
     Dates: start: 20111109, end: 20111201
  2. BIRTH CONTROL (NOS) (BIRTH CONTROL (NOS)) (BIRTH CONTROL (NOS)) [Concomitant]
  3. PRENATAL VITAMIN (NOS) (PRENATAL VITAMIN (NOS)) (PRENATAL VITAMIN (NOS [Concomitant]
  4. FISH OIL (FISH OIL) (FISH OIL) [Concomitant]
  5. VIIBRYD [Suspect]
     Indication: DEPRESSION
     Dosage: 10 MG (10 MG, 1 IN 1 D), ORAL, 20 MG (20 MG, 1 IN 1 D), ORAL
     Route: 048
     Dates: start: 20111102, end: 20111108
  6. VIIBRYD [Suspect]
     Indication: DEPRESSION
     Dosage: 10 MG (10 MG, 1 IN 1 D), ORAL, 20 MG (20 MG, 1 IN 1 D), ORAL
     Route: 048
     Dates: start: 20111026, end: 20111101

REACTIONS (3)
  - HALLUCINATION [None]
  - DISORIENTATION [None]
  - SOMNAMBULISM [None]
